FAERS Safety Report 25062583 (Version 1)
Quarter: 2025Q1

REPORT INFORMATION
  Report Type: Spontaneous
  Country: US (occurrence: US)
  Receive Date: 20250311
  Receipt Date: 20250311
  Transmission Date: 20250409
  Serious: Yes (Life-Threatening, Hospitalization, Congenital Anomaly, Other)
  Sender: ALEXION PHARMACEUTICALS
  Company Number: US-AstraZeneca-CH-00822317AP

PATIENT

DRUGS (3)
  1. SYMBICORT [Suspect]
     Active Substance: BUDESONIDE\FORMOTEROL FUMARATE DIHYDRATE
  2. ALBUTEROL [Concomitant]
     Active Substance: ALBUTEROL
     Route: 065
  3. ATROVENT [Concomitant]
     Active Substance: IPRATROPIUM BROMIDE
     Route: 065

REACTIONS (23)
  - Nephrolithiasis [Unknown]
  - Renal procedural complication [Unknown]
  - Kidney infection [Unknown]
  - Critical illness [Unknown]
  - Kidney infection [Unknown]
  - Loss of consciousness [Unknown]
  - Multiple fractures [Unknown]
  - Immunodeficiency [Unknown]
  - Hip fracture [Unknown]
  - Somnolence [Unknown]
  - Urinary tract infection pseudomonal [Unknown]
  - Urosepsis [Unknown]
  - Pneumonia [Unknown]
  - Accident at work [Unknown]
  - Allergy to chemicals [Unknown]
  - Nasopharyngitis [Unknown]
  - Eye infection [Unknown]
  - Insomnia [Unknown]
  - Occupational asthma [Unknown]
  - Reactive airways dysfunction syndrome [Unknown]
  - Product dose omission issue [Unknown]
  - Wrong technique in device usage process [Unknown]
  - Device malfunction [Unknown]
